FAERS Safety Report 8211838-7 (Version None)
Quarter: 2012Q1

REPORT INFORMATION
  Report Type: 
  Country: None (occurrence: None)
  Receive Date: 20120315
  Receipt Date: 20120306
  Transmission Date: 20120608
  Serious: Yes (Hospitalization)
  Sender: FDA-Public Use
  Company Number: IT-JNJFOC-20120110547

PATIENT
  Sex: Male

DRUGS (6)
  1. RISPERDAL [Suspect]
     Indication: SELF INJURIOUS BEHAVIOUR
     Route: 048
     Dates: start: 20120123
  2. VALIUM [Suspect]
     Indication: SELF INJURIOUS BEHAVIOUR
     Route: 048
     Dates: start: 20120123
  3. RISPERDAL [Suspect]
     Route: 048
  4. NOCTAMIDE [Suspect]
     Indication: SELF INJURIOUS BEHAVIOUR
     Route: 048
     Dates: start: 20120123
  5. RISPERDAL [Suspect]
     Route: 048
  6. RISPERDAL [Suspect]
     Indication: PRODUCT USED FOR UNKNOWN INDICATION
     Route: 048
     Dates: start: 20120123

REACTIONS (3)
  - SELF INJURIOUS BEHAVIOUR [None]
  - MULTIPLE DRUG OVERDOSE INTENTIONAL [None]
  - COMA [None]
